FAERS Safety Report 15515998 (Version 1)
Quarter: 2018Q4

REPORT INFORMATION
  Report Type: Spontaneous
  Country: ES (occurrence: ES)
  Receive Date: 20181017
  Receipt Date: 20181017
  Transmission Date: 20190205
  Serious: Yes (Other)
  Sender: FDA-Public Use
  Company Number: ES-AUROBINDO-AUR-APL-2018-050594

PATIENT
  Age: 42 Year
  Sex: Female
  Weight: 65 kg

DRUGS (6)
  1. PARACETAMOL 1000 MG TABLETS [Suspect]
     Active Substance: ACETAMINOPHEN
     Indication: OSTEOARTHRITIS
     Dosage: 1 DOSAGE FORM, 3 TIMES A DAY
     Route: 048
     Dates: start: 20180924, end: 20180927
  2. METAMIZOLE [Concomitant]
     Active Substance: METAMIZOLE
     Indication: OSTEOARTHRITIS
     Dosage: 1 DOSAGE FORM, 3 TIMES A DAY
     Route: 048
     Dates: start: 20180924
  3. OMEPRAZOLE. [Concomitant]
     Active Substance: OMEPRAZOLE
     Indication: OSTEOARTHRITIS
     Dosage: 1 FG DAILY
     Route: 048
     Dates: start: 20180925
  4. MEDROXIPROGESTERONE [Suspect]
     Active Substance: MEDROXYPROGESTERONE
     Indication: INJECTABLE CONTRACEPTION
     Dosage: 1 DOSAGE FORM EVERY 3 MONTHS
     Route: 030
     Dates: start: 20140204
  5. LORMETAZEPAM [Concomitant]
     Active Substance: LORMETAZEPAM
     Indication: TENSION HEADACHE
     Dosage: 2 FG DAILY
     Route: 048
     Dates: start: 20171229
  6. FERROUS SULFATE. [Concomitant]
     Active Substance: FERROUS SULFATE
     Indication: ANAEMIA
     Dosage: 1 FG, TWO TIMES A DAY
     Route: 048

REACTIONS (1)
  - Cholestasis [Not Recovered/Not Resolved]

NARRATIVE: CASE EVENT DATE: 20180925
